FAERS Safety Report 4982224-8 (Version None)
Quarter: 2006Q2

REPORT INFORMATION
  Report Type: 
  Country: None (occurrence: None)
  Receive Date: 20060421
  Receipt Date: 20060411
  Transmission Date: 20061013
  Serious: Yes (Hospitalization)
  Sender: FDA-Public Use
  Company Number: 13891

PATIENT
  Age: 55 Year
  Sex: Male

DRUGS (17)
  1. CYTARABINE [Suspect]
     Indication: ACUTE MYELOID LEUKAEMIA
     Dates: start: 20060208, end: 20060212
  2. ETOPOSIDE [Suspect]
     Indication: ACUTE MYELOID LEUKAEMIA
     Dates: start: 20060208, end: 20060212
  3. MITOXANTRONE [Suspect]
     Indication: ACUTE MYELOID LEUKAEMIA
     Dates: start: 20060208, end: 20060212
  4. CARVEDILOL [Concomitant]
  5. DYAZIDE [Concomitant]
  6. CLONIDINE [Concomitant]
  7. GLIPIZIDE [Concomitant]
  8. LIPITOR   /01326101/ [Concomitant]
  9. GABAPENTIN [Concomitant]
  10. AVAPRO [Concomitant]
  11. AMBIEN [Concomitant]
  12. ALLOPURINOL [Concomitant]
  13. VIAGRA [Concomitant]
  14. FLONASE [Concomitant]
  15. PREVACID [Concomitant]
  16. ANZEMET [Concomitant]
  17. ZYRTEC [Concomitant]

REACTIONS (7)
  - BACTERAEMIA [None]
  - CATHETER RELATED INFECTION [None]
  - DIARRHOEA [None]
  - EPIGASTRIC DISCOMFORT [None]
  - FEBRILE NEUTROPENIA [None]
  - STREPTOCOCCAL INFECTION [None]
  - WHITE BLOOD CELL COUNT DECREASED [None]
